FAERS Safety Report 13404544 (Version 1)
Quarter: 2017Q2

REPORT INFORMATION
  Report Type: Spontaneous
  Country: US (occurrence: US)
  Receive Date: 20170405
  Receipt Date: 20170405
  Transmission Date: 20170830
  Serious: Yes (Disabling)
  Sender: FDA-Public Use
  Company Number: None

PATIENT
  Age: 50 Year
  Sex: Female
  Weight: 70 kg

DRUGS (5)
  1. ACTIVATED B6 [Concomitant]
  2. FISH OIL [Concomitant]
     Active Substance: FISH OIL
  3. ALPHA LIPOIC ACID [Concomitant]
     Active Substance: .ALPHA.-LIPOIC ACID
  4. CIPROFLOXACILLIN [Suspect]
     Active Substance: CIPROFLOXACIN
     Indication: OTITIS EXTERNA
     Dosage: IV AND INTO EAR CANAL?
     Route: 042
     Dates: start: 20131128, end: 20131128
  5. MAGNESIUM [Concomitant]
     Active Substance: MAGNESIUM

REACTIONS (11)
  - Deafness [None]
  - Anhedonia [None]
  - Loss of personal independence in daily activities [None]
  - Ligament rupture [None]
  - Tinnitus [None]
  - Hyperthyroidism [None]
  - Hyperacusis [None]
  - Anxiety disorder [None]
  - Anaemia [None]
  - Systemic lupus erythematosus [None]
  - Autoimmune thyroiditis [None]

NARRATIVE: CASE EVENT DATE: 20131128
